FAERS Safety Report 22274233 (Version 12)
Quarter: 2024Q3

REPORT INFORMATION
  Report Type: Spontaneous
  Country: US (occurrence: US)
  Receive Date: 20230502
  Receipt Date: 20240816
  Transmission Date: 20241016
  Serious: Yes (Other)
  Sender: CATALYST PHARMA
  Company Number: US-CATALYST PHARMACEUTICALS, INC-US-CATA-23-00199

PATIENT
  Sex: Female
  Weight: 89.615 kg

DRUGS (32)
  1. FIRDAPSE [Suspect]
     Active Substance: AMIFAMPRIDINE PHOSPHATE
     Indication: Myasthenic syndrome
     Dosage: 1 TABLET ONCE A DAY
     Route: 048
     Dates: start: 20230404, end: 2023
  2. FIRDAPSE [Suspect]
     Active Substance: AMIFAMPRIDINE PHOSPHATE
     Dosage: 1/2 TABLET 3 X DAY FOR 7 DAYS (15 MG), THEN 1 TABLET 3 X DAY
     Route: 048
     Dates: start: 2023, end: 2023
  3. FIRDAPSE [Suspect]
     Active Substance: AMIFAMPRIDINE PHOSPHATE
     Dosage: LESS THEN 30 MG
     Route: 048
     Dates: start: 2023
  4. FIRDAPSE [Suspect]
     Active Substance: AMIFAMPRIDINE PHOSPHATE
     Dosage: 1 TABLET 3 TIMES A DAY
     Route: 048
     Dates: start: 20230403, end: 20240125
  5. FIRDAPSE [Suspect]
     Active Substance: AMIFAMPRIDINE PHOSPHATE
     Dosage: TITRATING UP AT 1/2 TABLET 3 TIMES A DAY
     Route: 048
     Dates: start: 20240205, end: 202402
  6. FIRDAPSE [Suspect]
     Active Substance: AMIFAMPRIDINE PHOSPHATE
     Dosage: 1 TABLET ORALLY 3 TIMES PER DAY
     Route: 048
     Dates: start: 202402, end: 202402
  7. FIRDAPSE [Suspect]
     Active Substance: AMIFAMPRIDINE PHOSPHATE
     Dosage: 1 TABLET 3 TIMES A DAY
     Route: 048
     Dates: start: 2024
  8. GAMMAPLEX [Suspect]
     Active Substance: HUMAN IMMUNOGLOBULIN G
     Indication: Product used for unknown indication
     Dosage: INJECT 0.4 G/KG INTO THE VEIN EVERY 28 DAYS (COMPLETED 2 DOSES)
     Route: 042
     Dates: start: 202301, end: 202301
  9. GAMMAPLEX [Suspect]
     Active Substance: HUMAN IMMUNOGLOBULIN G
     Dosage: INJECT 0.4 G/KG INTO THE VEIN EVERY 28 DAYS
     Route: 042
     Dates: start: 20231003, end: 20231003
  10. GAMMAPLEX [Suspect]
     Active Substance: HUMAN IMMUNOGLOBULIN G
     Dosage: 80 GRAMS
     Route: 042
     Dates: start: 20240125
  11. AMBIEN [Concomitant]
     Active Substance: ZOLPIDEM TARTRATE
     Indication: Product used for unknown indication
     Dosage: 10 MG AT BEDTIME
     Route: 048
  12. AMBIEN [Concomitant]
     Active Substance: ZOLPIDEM TARTRATE
     Dosage: 1 TABLET BY MOUTH
     Route: 048
  13. AMBIEN [Concomitant]
     Active Substance: ZOLPIDEM TARTRATE
     Dosage: 10 MG
     Route: 048
  14. ATIVAN [Concomitant]
     Active Substance: LORAZEPAM
     Indication: Product used for unknown indication
     Dosage: 1 TABLET AT BEDTIME AS NEEDED ORALLY ONCE A DAY
     Route: 048
  15. BUTRANS [Concomitant]
     Active Substance: BUPRENORPHINE
     Indication: Product used for unknown indication
     Dosage: 10 MCG/HR 1 PATCH WEEKLY
     Route: 062
  16. BUTRANS [Concomitant]
     Active Substance: BUPRENORPHINE
     Dosage: UNK
  17. CHLOROPHYL ALFALFA [Concomitant]
     Indication: Supplementation therapy
     Dosage: 20-100 MG DAILY
     Route: 065
  18. COENZYME Q10 [Concomitant]
     Active Substance: DIETARY SUPPLEMENT\UBIDECARENONE
     Indication: Product used for unknown indication
     Dosage: 10 ML DAILY
     Route: 048
  19. MAGNESIUM OXIDE [Concomitant]
     Active Substance: MAGNESIUM OXIDE
     Indication: Product used for unknown indication
     Dosage: 400 MILLIGRAM, QD
     Route: 065
  20. PREDNISONE [Concomitant]
     Active Substance: PREDNISONE
     Indication: Product used for unknown indication
     Dosage: 2 TABLETS BY MOUTH ONCE DAILY AS NEEDED
     Route: 048
  21. PREDNISONE [Concomitant]
     Active Substance: PREDNISONE
     Dosage: 10 MG
     Route: 048
  22. TYLENOL [Concomitant]
     Active Substance: ACETAMINOPHEN
     Indication: Product used for unknown indication
     Dosage: 325 MG AS NEEDED
     Route: 065
  23. AMIFAMPRIDINE PHOSPHATE [Concomitant]
     Active Substance: AMIFAMPRIDINE PHOSPHATE
     Indication: Product used for unknown indication
     Dosage: 1 TABLET BY MOUTH (10 MG DAILY)
     Route: 048
  24. ESTRADIOL [Concomitant]
     Active Substance: ESTRADIOL
     Indication: Product used for unknown indication
     Dosage: 1 TABLET BY MOUTH ONCE DAILY
     Route: 048
  25. LANSOPRAZOLE [Concomitant]
     Active Substance: LANSOPRAZOLE
     Indication: Product used for unknown indication
     Dosage: 1 CAPSULE (30 MG TOTAL) BY MOUTH DAILY
     Route: 048
  26. MECLIZINE [Concomitant]
     Active Substance: MECLIZINE HYDROCHLORIDE
     Indication: Dizziness
     Dosage: 1 TABLET (25 MG TOTAL) BY MOUTH 3 TIMES DAILY AS NEEDED
     Route: 048
  27. MEDROXYPROGESTERONE ACETATE [Concomitant]
     Active Substance: MEDROXYPROGESTERONE ACETATE
     Indication: Product used for unknown indication
     Dosage: 1 TABLET BY MOUTH ONCE DAILY
     Route: 048
  28. ONDANSETRON [Concomitant]
     Active Substance: ONDANSETRON
     Indication: Nausea
     Dosage: DISSOLVE 1 TABLET IN MOUTH EVERY 8 HOURS AS NEEDED
     Route: 048
  29. PANTOPRAZOLE SODIUM [Concomitant]
     Active Substance: PANTOPRAZOLE SODIUM
     Indication: Product used for unknown indication
     Dosage: 1 TABLET BY MOUTH ONCE DAILY
     Route: 048
  30. VENTOLIN HFA 108 (90 Base) [Concomitant]
     Indication: Wheezing
     Dosage: 2 PUFFS BY MOUTH EVERY 4 HOURS AS NEEDED
     Route: 048
  31. ALPHA LIPOIC ACID [Concomitant]
     Active Substance: .ALPHA.-LIPOIC ACID
     Indication: Autonomic neuropathy
     Dosage: UNKNOWN
     Route: 065
  32. MAGNESIUM [Concomitant]
     Active Substance: MAGNESIUM
     Indication: Product used for unknown indication
     Dosage: 400 MG
     Route: 065

REACTIONS (35)
  - Myasthenic syndrome [Unknown]
  - Condition aggravated [Unknown]
  - Diverticulitis [Not Recovered/Not Resolved]
  - Condition aggravated [Not Recovered/Not Resolved]
  - Raynaud^s phenomenon [Not Recovered/Not Resolved]
  - Thymoma [Not Recovered/Not Resolved]
  - Impaired gastric emptying [Not Recovered/Not Resolved]
  - Impaired gastric emptying [Unknown]
  - Sensory loss [Unknown]
  - Clumsiness [Unknown]
  - Condition aggravated [Unknown]
  - Speech disorder [Unknown]
  - Ageusia [Not Recovered/Not Resolved]
  - Burning sensation [Not Recovered/Not Resolved]
  - Infusion related reaction [Unknown]
  - Vomiting [Unknown]
  - Wheelchair user [Unknown]
  - Illness [Unknown]
  - Tremor [Not Recovered/Not Resolved]
  - Hypoaesthesia [Unknown]
  - Tremor [Unknown]
  - Hypoaesthesia oral [Unknown]
  - Paraesthesia oral [Unknown]
  - Paraesthesia [Unknown]
  - Asthenia [Not Recovered/Not Resolved]
  - Limb discomfort [Not Recovered/Not Resolved]
  - Muscular weakness [Not Recovered/Not Resolved]
  - Dyspnoea [Unknown]
  - Dyspnoea [Unknown]
  - Headache [Unknown]
  - Upper respiratory tract infection [Not Recovered/Not Resolved]
  - Product use issue [Unknown]
  - Product distribution issue [Unknown]
  - Underdose [Unknown]
  - Product dose omission issue [Recovered/Resolved]

NARRATIVE: CASE EVENT DATE: 20230101
